FAERS Safety Report 4839912-3 (Version None)
Quarter: 2005Q4

REPORT INFORMATION
  Report Type: 
  Country: None (occurrence: None)
  Receive Date: 20051129
  Receipt Date: 20051123
  Transmission Date: 20060501
  Serious: Yes (Life-Threatening)
  Sender: FDA-Public Use
  Company Number: AU-ROCHE-425850

PATIENT
  Age: 22 Year
  Sex: Male

DRUGS (5)
  1. CEFTRIAXONE [Suspect]
     Route: 065
     Dates: start: 20030705, end: 20030707
  2. CEPHALEXIN [Suspect]
     Indication: RESPIRATORY DISORDER
     Route: 065
  3. ROXITHROMYCIN [Suspect]
     Route: 048
     Dates: start: 20030705, end: 20030707
  4. NILSTAT [Suspect]
     Indication: DRUG USE FOR UNKNOWN INDICATION
     Dosage: FORM REPORTED AS ORAL APPLICATION.
     Route: 048
     Dates: start: 20030705, end: 20030709
  5. ACYCLOVIR [Suspect]
     Indication: RASH
     Route: 065
     Dates: start: 20030705, end: 20030708

REACTIONS (3)
  - DYSPNOEA [None]
  - RASH [None]
  - STEVENS-JOHNSON SYNDROME [None]
